FAERS Safety Report 5889763-6 (Version None)
Quarter: 2008Q3

REPORT INFORMATION
  Report Type: 
  Country: None (occurrence: None)
  Receive Date: 20080919
  Receipt Date: 20080908
  Transmission Date: 20090109
  Serious: Yes (Hospitalization)
  Sender: FDA-Public Use
  Company Number: US-ELI_LILLY_AND_COMPANY-US200803003041

PATIENT
  Sex: Female
  Weight: 98.413 kg

DRUGS (9)
  1. ZYPREXA [Suspect]
     Dates: start: 19970206, end: 19970731
  2. ABILIFY [Concomitant]
     Dates: start: 20080101
  3. SEROQUEL [Concomitant]
     Dates: start: 20060101, end: 20070101
  4. RISPERDAL [Concomitant]
     Dates: start: 19980101
  5. DEPAKOTE [Concomitant]
     Dates: start: 20080101
  6. SINEQUAN [Concomitant]
     Dates: start: 19940101
  7. PROZAC [Concomitant]
     Dates: start: 19950101
  8. REMERON [Concomitant]
     Dates: start: 19980101
  9. EFFEXOR [Concomitant]
     Dates: start: 20010101

REACTIONS (3)
  - DIABETES MELLITUS [None]
  - DIABETIC KETOACIDOSIS [None]
  - RENAL FAILURE [None]
